FAERS Safety Report 5428688-7 (Version None)
Quarter: 2007Q3

REPORT INFORMATION
  Report Type: 
  Country: None (occurrence: None)
  Receive Date: 20070828
  Receipt Date: 20070816
  Transmission Date: 20080115
  Serious: Yes (Hospitalization, Other)
  Sender: FDA-Public Use
  Company Number: US-SHR-US-2007-016417

PATIENT
  Age: 51 Year
  Sex: Male

DRUGS (1)
  1. BETASERON [Suspect]
     Indication: RELAPSING-REMITTING MULTIPLE SCLEROSIS
     Dosage: 8 MIU, EVERY 2D
     Route: 058
     Dates: start: 20040502

REACTIONS (4)
  - ARTERIAL CATHETERISATION [None]
  - ARTERIAL STENT INSERTION [None]
  - LOSS OF CONSCIOUSNESS [None]
  - SEPTIC SHOCK [None]
